FAERS Safety Report 11616934 (Version 2)
Quarter: 2015Q4

REPORT INFORMATION
  Report Type: Spontaneous
  Country: US (occurrence: US)
  Receive Date: 20151009
  Receipt Date: 20151124
  Transmission Date: 20160304
  Serious: No
  Sender: FDA-Public Use
  Company Number: US-PFIZER INC-2015331961

PATIENT
  Age: 75 Year
  Sex: Female
  Weight: 86 kg

DRUGS (10)
  1. CAMPTOSAR [Suspect]
     Active Substance: IRINOTECAN HYDROCHLORIDE
     Indication: COLON CANCER STAGE IV
     Dosage: 346 MG, CYCLIC (PREPARED WITH 300 MG AND 40 MG, EVERY TWO WEEKS)
     Route: 042
  2. CAMPTOSAR [Suspect]
     Active Substance: IRINOTECAN HYDROCHLORIDE
     Dosage: 346 MG, CYCLIC (PREPARED WITH 300 MG AND 40 MG, EVERY TWO WEEKS)
     Route: 042
  3. DECADRON [Concomitant]
     Active Substance: DEXAMETHASONE
     Dosage: EVERY TWO WEEKS
  4. PRILOSEC [Concomitant]
     Active Substance: OMEPRAZOLE MAGNESIUM
     Dosage: UNK
     Route: 048
  5. EMEND [Concomitant]
     Active Substance: APREPITANT
     Dosage: 150 MG, EVERY TWO WEEKS
     Route: 042
  6. SINGULAIR [Concomitant]
     Active Substance: MONTELUKAST SODIUM
     Dosage: UNK
     Route: 048
  7. LEUCOVORIN. [Concomitant]
     Active Substance: LEUCOVORIN
     Dosage: UNK, CYCLIC
  8. ZOLOFT [Concomitant]
     Active Substance: SERTRALINE HYDROCHLORIDE
     Dosage: UNK
     Route: 048
  9. 5-FU [Concomitant]
     Active Substance: FLUOROURACIL
     Dosage: UNK UNK, CYCLIC
  10. ALOXI [Concomitant]
     Active Substance: PALONOSETRON HYDROCHLORIDE
     Dosage: 0.25 MG, EVERY TWO WEEKS
     Route: 042

REACTIONS (1)
  - Dysarthria [Recovered/Resolved]

NARRATIVE: CASE EVENT DATE: 20150909
